FAERS Safety Report 7176647-9 (Version None)
Quarter: 2010Q4

REPORT INFORMATION
  Report Type: 
  Country: None (occurrence: None)
  Receive Date: 20101207
  Receipt Date: 20101123
  Transmission Date: 20110411
  Serious: Yes (Death)
  Sender: FDA-Public Use
  Company Number: 011618

PATIENT
  Age: 87 Year
  Sex: Female

DRUGS (3)
  1. SAMSCA [Suspect]
     Dosage: 7.5 MG, DAILY DOSE, ORAL, 15 MG, DAILY DOSE, ORAL, 15 MG, QOD, ORAL
     Route: 048
     Dates: start: 20100901
  2. SAMSCA [Suspect]
     Dosage: 7.5 MG, DAILY DOSE, ORAL, 15 MG, DAILY DOSE, ORAL, 15 MG, QOD, ORAL
     Route: 048
     Dates: start: 20100901
  3. SAMSCA [Suspect]
     Dosage: 7.5 MG, DAILY DOSE, ORAL, 15 MG, DAILY DOSE, ORAL, 15 MG, QOD, ORAL
     Route: 048
     Dates: start: 20101001

REACTIONS (5)
  - BLOOD SODIUM DECREASED [None]
  - HALLUCINATION [None]
  - MYOCARDIAL INFARCTION [None]
  - NIGHTMARE [None]
  - TREMOR [None]
